FAERS Safety Report 5571811-4 (Version None)
Quarter: 2007Q4

REPORT INFORMATION
  Report Type: 
  Country: None (occurrence: None)
  Receive Date: 20071221
  Receipt Date: 20071220
  Transmission Date: 20080405
  Serious: Yes (Other)
  Sender: FDA-Public Use
  Company Number: B0500513A

PATIENT
  Age: 8 Year
  Sex: Female
  Weight: 25.4 kg

DRUGS (3)
  1. CLENIL [Suspect]
     Route: 055
     Dates: start: 20071207, end: 20071213
  2. BECOTIDE [Concomitant]
     Route: 055
     Dates: start: 20070901, end: 20071207
  3. ALBUTEROL [Concomitant]
     Route: 055
     Dates: start: 20071109

REACTIONS (2)
  - COUGH [None]
  - DYSGEUSIA [None]
